FAERS Safety Report 12386229 (Version 2)
Quarter: 2016Q2

REPORT INFORMATION
  Report Type: Spontaneous
  Country: US (occurrence: US)
  Receive Date: 20160519
  Receipt Date: 20160607
  Transmission Date: 20160815
  Serious: Yes (Other)
  Sender: FDA-Public Use
  Company Number: ADR-2015-01586

PATIENT
  Age: 51 Year
  Sex: Male

DRUGS (4)
  1. BUPIVACAINE. [Suspect]
     Active Substance: BUPIVACAINE
     Dosage: 2.999 MG/DAY
     Route: 037
  2. BACLOFEN. [Suspect]
     Active Substance: BACLOFEN
     Dosage: 117.46 MCG/DAY
     Route: 037
  3. HYDROMORPHONE [Suspect]
     Active Substance: HYDROMORPHONE
     Dosage: 9.997 MG/DAY
     Route: 037
  4. FENTANYL. [Suspect]
     Active Substance: FENTANYL
     Dosage: 1.9994 MG/DAY
     Route: 037

REACTIONS (10)
  - Headache [Unknown]
  - Musculoskeletal pain [Unknown]
  - Neck pain [Unknown]
  - Pain [Unknown]
  - Back pain [Unknown]
  - Pain in extremity [Unknown]
  - Chest pain [Unknown]
  - Road traffic accident [Unknown]
  - Hypoaesthesia [Unknown]
  - Performance status decreased [Unknown]

NARRATIVE: CASE EVENT DATE: 20150812
